FAERS Safety Report 9694065 (Version 1)
Quarter: 2013Q4

REPORT INFORMATION
  Report Type: Spontaneous
  Country: US (occurrence: US)
  Receive Date: 20131118
  Receipt Date: 20131118
  Transmission Date: 20140711
  Serious: No
  Sender: FDA-Public Use
  Company Number: US-009507513-1311USA005487

PATIENT
  Sex: Female

DRUGS (2)
  1. SINGULAIR [Suspect]
     Indication: MULTIPLE ALLERGIES
     Dosage: 1 QD SZ 344
     Route: 065
  2. SINGULAIR [Suspect]
     Indication: ASTHMA
     Dosage: 1 QD SZ 344
     Route: 065

REACTIONS (6)
  - Dizziness [Unknown]
  - Myalgia [Unknown]
  - Pain [Unknown]
  - Product substitution issue [Unknown]
  - Sinus headache [Unknown]
  - Suicidal ideation [Unknown]
